FAERS Safety Report 21850026 (Version 1)
Quarter: 2023Q1

REPORT INFORMATION
  Report Type: Spontaneous
  Country: CN (occurrence: CN)
  Receive Date: 20230111
  Receipt Date: 20230111
  Transmission Date: 20230418
  Serious: Yes (Other)
  Sender: FDA-Public Use
  Company Number: CN-GLAXOSMITHKLINE-CN2023GSK000827

PATIENT

DRUGS (9)
  1. BELIMUMAB [Suspect]
     Active Substance: BELIMUMAB
     Indication: Systemic lupus erythematosus
     Dosage: 10 MG/KG
     Route: 064
  2. BELIMUMAB [Suspect]
     Active Substance: BELIMUMAB
     Indication: Thrombocytopenia
  3. PREDNISONE [Suspect]
     Active Substance: PREDNISONE
     Indication: Thrombocytopenia
     Dosage: UNK
     Route: 064
  4. PREDNISONE [Suspect]
     Active Substance: PREDNISONE
     Dosage: 20 MG, QD
     Route: 064
  5. PREDNISONE [Suspect]
     Active Substance: PREDNISONE
     Dosage: 50 MG, QD
     Route: 064
  6. HYDROXYCHLOROQUINE [Suspect]
     Active Substance: HYDROXYCHLOROQUINE
     Indication: Thrombocytopenia
     Dosage: 200 MG, BID
     Route: 064
  7. TACROLIMUS [Suspect]
     Active Substance: TACROLIMUS
     Indication: Thrombocytopenia
     Dosage: 1.5 MG, BID
     Route: 064
  8. ASPIRIN [Suspect]
     Active Substance: ASPIRIN
     Indication: Thrombocytopenia
     Dosage: 50 MG, QD
     Route: 064
  9. PROPYLTHIOURACIL [Suspect]
     Active Substance: PROPYLTHIOURACIL
     Indication: Hyperthyroidism
     Dosage: UNK, BID
     Route: 064

REACTIONS (2)
  - Foetal distress syndrome [Recovered/Resolved]
  - Foetal exposure during pregnancy [Unknown]
